FAERS Safety Report 7126167-2 (Version None)
Quarter: 2010Q4

REPORT INFORMATION
  Report Type: 
  Country: None (occurrence: None)
  Receive Date: 20101129
  Receipt Date: 20101125
  Transmission Date: 20110411
  Serious: Yes (Death)
  Sender: FDA-Public Use
  Company Number: JP-EISAI INC.-E2020-08049-SPO-JP

PATIENT
  Age: 70 Year
  Sex: Female

DRUGS (2)
  1. ARICEPT [Suspect]
     Indication: DEMENTIA ALZHEIMER'S TYPE
     Route: 048
     Dates: start: 20100301, end: 20101101
  2. ARICEPT [Suspect]
     Route: 048
     Dates: start: 20101101

REACTIONS (1)
  - CARDIAC FAILURE [None]
